FAERS Safety Report 23227349 (Version 2)
Quarter: 2023Q4

REPORT INFORMATION
  Report Type: Spontaneous
  Country: US (occurrence: US)
  Receive Date: 20231124
  Receipt Date: 20231222
  Transmission Date: 20240110
  Serious: Yes (Other)
  Sender: FDA-Public Use
  Company Number: US-PFIZER INC-PV202300190456

PATIENT
  Age: 66 Year
  Sex: Female
  Weight: 111.11 kg

DRUGS (1)
  1. CHANTIX [Suspect]
     Active Substance: VARENICLINE TARTRATE
     Indication: Smoking cessation therapy
     Dosage: UNK
     Dates: start: 2010

REACTIONS (4)
  - Overweight [Unknown]
  - Glucose tolerance impaired [Unknown]
  - Nausea [Unknown]
  - Condition aggravated [Unknown]
